FAERS Safety Report 14477284 (Version 1)
Quarter: 2018Q1

REPORT INFORMATION
  Report Type: Report from Study
  Country: US (occurrence: US)
  Receive Date: 20180201
  Receipt Date: 20180201
  Transmission Date: 20180509
  Serious: No
  Sender: FDA-Public Use
  Company Number: US-EXELIXIS-CABO-17010374

PATIENT
  Sex: Female

DRUGS (13)
  1. XARELTO [Concomitant]
     Active Substance: RIVAROXABAN
  2. COMETRIQ [Suspect]
     Active Substance: CABOZANTINIB S-MALATE
     Dosage: 100 MG, QD
     Route: 048
     Dates: end: 20170927
  3. LEVOTHYROXIN [Concomitant]
     Active Substance: LEVOTHYROXINE
  4. CALCIUM 500+D [Concomitant]
     Active Substance: CALCIUM\VITAMIN D
  5. VENTOLIN HFA [Concomitant]
     Active Substance: ALBUTEROL SULFATE
  6. DIOVAN [Concomitant]
     Active Substance: VALSARTAN
  7. COMETRIQ [Suspect]
     Active Substance: CABOZANTINIB S-MALATE
     Indication: THYROID CANCER
     Dosage: 140 MG, QD
     Route: 048
     Dates: start: 20161111
  8. KLOR-CON [Concomitant]
     Active Substance: POTASSIUM CHLORIDE
  9. TYLENOL [Concomitant]
     Active Substance: ACETAMINOPHEN
  10. MULTIVITAMIN [Concomitant]
     Active Substance: VITAMINS
  11. FLUOXETINE [Concomitant]
     Active Substance: FLUOXETINE HYDROCHLORIDE
  12. AMLODIPINE [Concomitant]
     Active Substance: AMLODIPINE BESYLATE
  13. OMEPRAZOLE. [Concomitant]
     Active Substance: OMEPRAZOLE

REACTIONS (7)
  - Headache [Unknown]
  - Drug administration error [Unknown]
  - Dizziness [Not Recovered/Not Resolved]
  - Asthenia [Not Recovered/Not Resolved]
  - Dry skin [Unknown]
  - Diarrhoea [Recovering/Resolving]
  - Laboratory test abnormal [Unknown]
